FAERS Safety Report 5123747-0 (Version None)
Quarter: 2006Q3

REPORT INFORMATION
  Report Type: 
  Country: None (occurrence: None)
  Receive Date: 20060811
  Receipt Date: 20060530
  Transmission Date: 20061208
  Serious: No
  Sender: FDA-Public Use
  Company Number: S06-USA-02029-01

PATIENT
  Age: 67 Year
  Sex: Female

DRUGS (7)
  1. NAMENDA [Suspect]
     Indication: DEMENTIA
     Dosage: 5 MG BID PO
     Route: 048
     Dates: start: 20060501, end: 20060501
  2. NAMENDA [Suspect]
     Indication: DEMENTIA
     Dosage: 5 MG BID PO
     Route: 048
     Dates: start: 20060501
  3. ARICEPT [Concomitant]
  4. NORVASC [Concomitant]
  5. MOBIC [Concomitant]
  6. FLAXSEED OIL [Concomitant]
  7. VITAMINS [Concomitant]

REACTIONS (2)
  - MEMORY IMPAIRMENT [None]
  - REPETITIVE SPEECH [None]
